FAERS Safety Report 25379825 (Version 2)
Quarter: 2025Q2

REPORT INFORMATION
  Report Type: Spontaneous
  Country: CA (occurrence: CA)
  Receive Date: 20250530
  Receipt Date: 20250609
  Transmission Date: 20250717
  Serious: No
  Sender: PFIZER
  Company Number: CA-PFIZER INC-PV202500048087

PATIENT
  Age: 45 Year
  Sex: Male
  Weight: 72.562 kg

DRUGS (5)
  1. RUXIENCE [Suspect]
     Active Substance: RITUXIMAB-PVVR
     Indication: Warm autoimmune haemolytic anaemia
     Dosage: 705 MG, WEEKLY X 4 DOSES
     Route: 042
     Dates: start: 20250527
  2. RUXIENCE [Suspect]
     Active Substance: RITUXIMAB-PVVR
     Dosage: 705 MG, WEEKLY X 4 DOSES
     Route: 042
     Dates: start: 20250527
  3. TYLENOL [Concomitant]
     Active Substance: ACETAMINOPHEN
     Indication: Premedication
     Route: 048
     Dates: start: 20250527
  4. BENADRYL [Concomitant]
     Active Substance: DIPHENHYDRAMINE HYDROCHLORIDE
     Indication: Premedication
     Route: 048
     Dates: start: 20250527
  5. SOLU-MEDROL [Concomitant]
     Active Substance: METHYLPREDNISOLONE SODIUM SUCCINATE
     Indication: Premedication
     Route: 042
     Dates: start: 20250527

REACTIONS (5)
  - Oropharyngeal pain [Recovered/Resolved]
  - Pruritus [Recovered/Resolved]
  - Heart rate decreased [Recovered/Resolved]
  - Blood pressure fluctuation [Unknown]
  - Off label use [Unknown]

NARRATIVE: CASE EVENT DATE: 20250527
